FAERS Safety Report 6113187-X (Version None)
Quarter: 2009Q1

REPORT INFORMATION
  Report Type: 
  Country: None (occurrence: None)
  Receive Date: 20090312
  Receipt Date: 20090303
  Transmission Date: 20090719
  Serious: Yes (Hospitalization)
  Sender: FDA-Public Use
  Company Number: GB-PFIZER INC-2009178762

PATIENT

DRUGS (23)
  1. PARACETAMOL [Suspect]
     Indication: MUSCLE SPASMS
     Route: 048
  2. SPIRONOLACTONE [Suspect]
  3. CODEINE [Suspect]
  4. ACOMPLIA [Suspect]
     Indication: OBESITY
     Route: 048
     Dates: start: 20080629, end: 20081013
  5. CARACE [Suspect]
  6. IRBESARTAN [Suspect]
  7. ACETYLSALICYLIC ACID [Concomitant]
  8. ATENOLOL [Concomitant]
  9. ATORVASTATIN CALCIUM [Concomitant]
  10. BISOPROLOL [Concomitant]
  11. DILTIAZEM HYDROCHLORIDE [Concomitant]
  12. FUROSEMIDE [Concomitant]
  13. ISOSORBIDE MONONITRATE [Concomitant]
  14. ISPAGHULA [Concomitant]
  15. LIDOCAINE HYDROCHLORIDE [Concomitant]
  16. NITRAZEPAM [Concomitant]
  17. NITROGLYCERIN [Concomitant]
  18. OMACOR [Concomitant]
     Route: 048
  19. OMEPRAZOLE [Concomitant]
  20. QUININE SULPHATE [Concomitant]
  21. SOLIFENACIN SUCCINATE [Concomitant]
  22. TRIMETHOPRIM [Concomitant]
  23. VESICARE [Concomitant]

REACTIONS (3)
  - ATRIAL FIBRILLATION [None]
  - CONSTIPATION [None]
  - DYSPEPSIA [None]
